FAERS Safety Report 9647375 (Version 2)
Quarter: 2014Q4

REPORT INFORMATION
  Report Type: Report from Study
  Country: AR (occurrence: AR)
  Receive Date: 20131027
  Receipt Date: 20141027
  Transmission Date: 20150529
  Serious: Yes (Hospitalization, Other)
  Sender: FDA-Public Use
  Company Number: AR-US-EMD SERONO, INC.-7244932

PATIENT
  Sex: Male

DRUGS (1)
  1. REBIF [Suspect]
     Active Substance: INTERFERON BETA-1A
     Indication: MULTIPLE SCLEROSIS
     Dates: start: 20120703, end: 20131017

REACTIONS (8)
  - Depressed mood [Recovered/Resolved]
  - Pericarditis [Recovered/Resolved]
  - Pain [Recovered/Resolved]
  - Pulmonary infarction [Recovered/Resolved]
  - Hypercoagulation [Unknown]
  - Multiple sclerosis relapse [Recovered/Resolved]
  - Rash [Unknown]
  - Treatment noncompliance [Recovered/Resolved]

NARRATIVE: CASE EVENT DATE: 2013
